FAERS Safety Report 11915664 (Version 1)
Quarter: 2016Q1

REPORT INFORMATION
  Report Type: Spontaneous
  Country: US (occurrence: None)
  Receive Date: 20160113
  Receipt Date: 20160113
  Transmission Date: 20160526
  Serious: No
  Sender: FDA-Public Use
  Company Number: None

PATIENT
  Age: 58 Year
  Sex: Female
  Weight: 100.7 kg

DRUGS (4)
  1. LEVOFLOXACIN 750MG [Suspect]
     Active Substance: LEVOFLOXACIN
     Indication: NASOPHARYNGITIS
     Dosage: 750 - 1 X ONCE DAILY TAKEN BY MOUTH
     Route: 048
     Dates: start: 20151228, end: 20160103
  2. LEVOTHYROXINE. [Concomitant]
     Active Substance: LEVOTHYROXINE
  3. LEVOFLOXACIN 750MG [Suspect]
     Active Substance: LEVOFLOXACIN
     Indication: SINUSITIS
     Dosage: 750 - 1 X ONCE DAILY TAKEN BY MOUTH
     Route: 048
     Dates: start: 20151228, end: 20160103
  4. LEVOFLOXACIN 750MG [Suspect]
     Active Substance: LEVOFLOXACIN
     Indication: COUGH
     Dosage: 750 - 1 X ONCE DAILY TAKEN BY MOUTH
     Route: 048
     Dates: start: 20151228, end: 20160103

REACTIONS (8)
  - Musculoskeletal discomfort [None]
  - Head discomfort [None]
  - Palpitations [None]
  - Headache [None]
  - Pain in extremity [None]
  - Arthralgia [None]
  - Cough [None]
  - Abdominal discomfort [None]

NARRATIVE: CASE EVENT DATE: 20160103
